FAERS Safety Report 9109872 (Version 2)
Quarter: 2013Q1

REPORT INFORMATION
  Report Type: Spontaneous
  Country: US (occurrence: US)
  Receive Date: 20130222
  Receipt Date: 20130301
  Transmission Date: 20140127
  Serious: Yes (Other)
  Sender: FDA-Public Use
  Company Number: US-ROCHE-1190274

PATIENT
  Age: 8 Year
  Sex: Male

DRUGS (1)
  1. TAMIFLU [Suspect]
     Indication: INFLUENZA
     Route: 048
     Dates: start: 20130208, end: 20130208

REACTIONS (20)
  - Vomiting [Unknown]
  - Nausea [Unknown]
  - Pyrexia [Unknown]
  - Somnambulism [Unknown]
  - Mydriasis [Unknown]
  - Staring [Unknown]
  - Dyskinesia [Unknown]
  - Syncope [Unknown]
  - Loss of consciousness [Unknown]
  - Hallucination [Unknown]
  - Vomiting [Unknown]
  - Sleep terror [Not Recovered/Not Resolved]
  - Middle insomnia [Not Recovered/Not Resolved]
  - Confusional state [Unknown]
  - Agitation [Unknown]
  - Pallor [Unknown]
  - Strabismus [Unknown]
  - Palpitations [Unknown]
  - Amnesia [Unknown]
  - Insomnia [Unknown]
